FAERS Safety Report 4340534-1 (Version None)
Quarter: 2004Q2

REPORT INFORMATION
  Report Type: 
  Country: None (occurrence: None)
  Receive Date: 20040414
  Receipt Date: 20040405
  Transmission Date: 20050107
  Serious: Yes (Hospitalization)
  Sender: FDA-Public Use
  Company Number: 2004-04-0126

PATIENT
  Age: 60 Year
  Sex: Male

DRUGS (1)
  1. NITRO-DUR [Suspect]
     Indication: ANGINA PECTORIS
     Dosage: 15 MG QD TRANSDERMAL
     Route: 062
     Dates: end: 20040404

REACTIONS (1)
  - APPLICATION SITE DERMATITIS [None]
